FAERS Safety Report 20199684 (Version 1)
Quarter: 2021Q4

REPORT INFORMATION
  Report Type: Spontaneous
  Country: US (occurrence: US)
  Receive Date: 20211217
  Receipt Date: 20211217
  Transmission Date: 20220303
  Serious: No
  Sender: FDA-Public Use
  Company Number: US-NOVEN PHARMACEUTICALS, INC.-2020US006869

PATIENT
  Sex: Female
  Weight: 63.492 kg

DRUGS (2)
  1. ESTRADIOL [Suspect]
     Active Substance: ESTRADIOL
     Indication: Blood oestrogen decreased
     Dosage: 0.05MG/DAY, TWICE WEEKLY
     Route: 062
  2. ESTRADIOL [Suspect]
     Active Substance: ESTRADIOL
     Indication: Hysterectomy

REACTIONS (3)
  - Application site hypersensitivity [Recovered/Resolved]
  - Product adhesion issue [Recovered/Resolved]
  - Product administered at inappropriate site [Recovered/Resolved]
